FAERS Safety Report 23616328 (Version 1)
Quarter: 2024Q1

REPORT INFORMATION
  Report Type: Spontaneous
  Country: US (occurrence: None)
  Receive Date: 20240308
  Receipt Date: 20240308
  Transmission Date: 20240409
  Serious: Yes (Hospitalization)
  Sender: FDA-Public Use
  Company Number: None

PATIENT
  Age: 72 Year
  Sex: Female

DRUGS (8)
  1. TIRZEPATIDE [Suspect]
     Active Substance: TIRZEPATIDE
     Indication: Type 2 diabetes mellitus
     Dosage: FREQUENCY : WEEKLY;?
     Route: 058
     Dates: start: 20230807, end: 20230822
  2. ATORVASTATIN [Concomitant]
     Active Substance: ATORVASTATIN
  3. AMLODIPINE [Concomitant]
     Active Substance: AMLODIPINE BESYLATE
     Dates: start: 20210513, end: 20231130
  4. CARVEDILOL [Concomitant]
     Active Substance: CARVEDILOL
     Dates: start: 20220114
  5. chlorthalidone 50 mg [Concomitant]
     Dates: start: 20220803
  6. IRBESARTAN [Concomitant]
     Active Substance: IRBESARTAN
     Dates: start: 20210505
  7. LEVOTHYROXINE [Concomitant]
     Active Substance: LEVOTHYROXINE\LEVOTHYROXINE SODIUM
  8. metformin XR 500 mg [Concomitant]
     Dates: start: 20210913

REACTIONS (6)
  - Diarrhoea [None]
  - Dehydration [None]
  - Hyponatraemia [None]
  - Hyperkalaemia [None]
  - Acute kidney injury [None]
  - Decreased appetite [None]

NARRATIVE: CASE EVENT DATE: 20230822
